FAERS Safety Report 6827608-8 (Version None)
Quarter: 2010Q3

REPORT INFORMATION
  Report Type: 
  Country: None (occurrence: None)
  Receive Date: 20100709
  Receipt Date: 20070119
  Transmission Date: 20110219
  Serious: No
  Sender: FDA-Public Use
  Company Number: US-PFIZER INC-2007006845

PATIENT
  Sex: Female
  Weight: 54.43 kg

DRUGS (1)
  1. CHANTIX [Suspect]
     Indication: SMOKING CESSATION THERAPY
     Route: 048
     Dates: start: 20070101

REACTIONS (6)
  - ABNORMAL DREAMS [None]
  - AGITATION [None]
  - CONFUSIONAL STATE [None]
  - HEART RATE INCREASED [None]
  - SLEEP DISORDER [None]
  - SPEECH DISORDER [None]
